FAERS Safety Report 14365644 (Version 2)
Quarter: 2018Q1

REPORT INFORMATION
  Report Type: Report from Study
  Country: None (occurrence: US)
  Receive Date: 20180109
  Receipt Date: 20180122
  Transmission Date: 20180509
  Serious: Yes (Other)
  Sender: FDA-Public Use
  Company Number: US-ABBVIE-18S-163-2212490-00

PATIENT
  Sex: Male

DRUGS (1)
  1. ANDROGEL [Suspect]
     Active Substance: TESTOSTERONE
     Indication: ANDROGEN REPLACEMENT THERAPY
     Dosage: BEEN ON IT FOR 1 YEAR. 4 PUMPS PER DAY.
     Route: 061
     Dates: start: 2017

REACTIONS (3)
  - Rash pruritic [Unknown]
  - Testis cancer [Unknown]
  - Application site rash [Unknown]
